FAERS Safety Report 23386151 (Version 1)
Quarter: 2024Q1

REPORT INFORMATION
  Report Type: Spontaneous
  Country: GB (occurrence: GB)
  Receive Date: 20240110
  Receipt Date: 20240110
  Transmission Date: 20240409
  Serious: Yes (Other)
  Sender: FDA-Public Use
  Company Number: None

PATIENT
  Age: 38 Year
  Weight: 98 kg

DRUGS (1)
  1. DOXORUBICIN [Suspect]
     Active Substance: DOXORUBICIN
     Indication: Breast cancer
     Route: 065
     Dates: start: 20220406

REACTIONS (2)
  - Medication error [Unknown]
  - Mental fatigue [Not Recovered/Not Resolved]

NARRATIVE: CASE EVENT DATE: 20230831
